FAERS Safety Report 10662940 (Version 1)
Quarter: 2014Q4

REPORT INFORMATION
  Report Type: Spontaneous
  Country: US (occurrence: US)
  Receive Date: 20141218
  Receipt Date: 20141218
  Transmission Date: 20150529
  Serious: No
  Sender: FDA-Public Use
  Company Number: US-GLAXOSMITHKLINE-A1050024A

PATIENT

DRUGS (5)
  1. FENOFIBRIC ACID CHOLINE [Concomitant]
  2. LOVAZA [Concomitant]
     Active Substance: OMEGA-3-ACID ETHYL ESTERS
  3. COREG CR [Suspect]
     Active Substance: CARVEDILOL PHOSPHATE
     Indication: ATRIOVENTRICULAR BLOCK
     Route: 048
     Dates: start: 201311
  4. VITAMINS [Concomitant]
     Active Substance: VITAMINS
  5. TRIBENZOR [Concomitant]
     Active Substance: AMLODIPINE BESYLATE\HYDROCHLOROTHIAZIDE\OLMESARTAN MEDOXOMIL

REACTIONS (1)
  - Discomfort [Not Recovered/Not Resolved]
